FAERS Safety Report 9845280 (Version 1)
Quarter: 2014Q1

REPORT INFORMATION
  Report Type: Spontaneous
  Country: US (occurrence: US)
  Receive Date: 20140127
  Receipt Date: 20140127
  Transmission Date: 20141002
  Serious: Yes (Disabling, Other)
  Sender: FDA-Public Use
  Company Number: US-ASTELLAS-2014US000630

PATIENT
  Age: 61 Year
  Sex: Male

DRUGS (2)
  1. PROGRAF [Suspect]
     Indication: LIVER TRANSPLANT
     Dosage: 0.5 MG, BID
     Route: 048
     Dates: start: 20110511
  2. PROGRAF [Suspect]
     Indication: RENAL TRANSPLANT

REACTIONS (4)
  - Abasia [Unknown]
  - Joint swelling [Unknown]
  - Oedema peripheral [Unknown]
  - Tremor [Unknown]
